FAERS Safety Report 23709050 (Version 1)
Quarter: 2024Q2

REPORT INFORMATION
  Report Type: Spontaneous
  Country: US (occurrence: US)
  Receive Date: 20240404
  Receipt Date: 20240404
  Transmission Date: 20240716
  Serious: No
  Sender: FDA-Public Use
  Company Number: US-PFIZER INC-PV202400043091

PATIENT
  Age: 57 Year
  Sex: Female

DRUGS (2)
  1. PALBOCICLIB [Suspect]
     Active Substance: PALBOCICLIB
     Dosage: 125 MG DAILY (21 DAYS ON, 7 DAYS OFF)
     Dates: start: 202308
  2. NERATINIB [Suspect]
     Active Substance: NERATINIB
     Dosage: UNK
     Dates: start: 202308

REACTIONS (1)
  - Neoplasm progression [Unknown]
